FAERS Safety Report 4889797-4 (Version None)
Quarter: 2006Q1

REPORT INFORMATION
  Report Type: 
  Country: None (occurrence: None)
  Receive Date: 20060124
  Receipt Date: 20050929
  Transmission Date: 20060701
  Serious: Yes (Hospitalization, Other)
  Sender: FDA-Public Use
  Company Number: US-MERCK-0509USA04734

PATIENT
  Age: 75 Year
  Sex: Male

DRUGS (5)
  1. VIOXX [Suspect]
     Indication: ARTHRITIS
     Route: 048
     Dates: start: 19990901, end: 20040901
  2. NEXIUM [Concomitant]
     Route: 048
  3. CARDURA [Concomitant]
     Route: 048
  4. ASPIRIN [Concomitant]
     Route: 065
  5. PAXIL [Concomitant]
     Route: 065

REACTIONS (16)
  - ANEURYSM [None]
  - APPENDIX DISORDER [None]
  - ATRIAL FIBRILLATION [None]
  - BENIGN PROSTATIC HYPERPLASIA [None]
  - CARDIOMYOPATHY [None]
  - CARDIOVASCULAR DISORDER [None]
  - CHEST DISCOMFORT [None]
  - CORONARY ARTERY DISEASE [None]
  - FATIGUE [None]
  - HERNIA [None]
  - HYPERLIPIDAEMIA [None]
  - MYOCARDIAL INFARCTION [None]
  - OESOPHAGITIS [None]
  - PALPITATIONS [None]
  - SILENT MYOCARDIAL INFARCTION [None]
  - VENTRICULAR TACHYCARDIA [None]
